FAERS Safety Report 19709792 (Version 1)
Quarter: 2021Q3

REPORT INFORMATION
  Report Type: Other
  Country: KR (occurrence: KR)
  Receive Date: 20210816
  Receipt Date: 20210816
  Transmission Date: 20211014
  Serious: Yes (Other)
  Sender: FDA-Public Use
  Company Number: KR-ROCHE-2890860

PATIENT

DRUGS (8)
  1. RITUXIMAB. [Suspect]
     Active Substance: RITUXIMAB
     Indication: RHEUMATOID ARTHRITIS
     Route: 065
  2. ADALIMUMAB [Suspect]
     Active Substance: ADALIMUMAB
     Indication: RHEUMATOID ARTHRITIS
     Dosage: EVERY OTHER WEEK
     Route: 065
  3. ETANERCEPT [Suspect]
     Active Substance: ETANERCEPT
     Indication: RHEUMATOID ARTHRITIS
     Dosage: WEEKLY
     Route: 065
  4. TOCILIZUMAB. [Suspect]
     Active Substance: TOCILIZUMAB
     Indication: RHEUMATOID ARTHRITIS
     Route: 042
  5. TOCILIZUMAB. [Suspect]
     Active Substance: TOCILIZUMAB
     Indication: RHEUMATOID ARTHRITIS
     Route: 058
  6. ABATACEPT [Suspect]
     Active Substance: ABATACEPT
     Indication: RHEUMATOID ARTHRITIS
     Route: 065
  7. TOFACITINIB [Suspect]
     Active Substance: TOFACITINIB
     Indication: RHEUMATOID ARTHRITIS
     Dosage: DAILY
     Route: 065
  8. INFLIXIMAB [Suspect]
     Active Substance: INFLIXIMAB
     Indication: RHEUMATOID ARTHRITIS
     Dosage: EVERY 8 WEEKS
     Route: 065

REACTIONS (22)
  - Pneumonia [Unknown]
  - Malignant melanoma [Unknown]
  - Malignant peritoneal neoplasm [Unknown]
  - Myocardial infarction [Unknown]
  - Colon cancer [Unknown]
  - Upper respiratory tract infection [Unknown]
  - Hepatitis B reactivation [Unknown]
  - Herpes zoster [Unknown]
  - Lymphoma [Unknown]
  - Cardiac arrest [Unknown]
  - Lung neoplasm malignant [Unknown]
  - Pulmonary embolism [Unknown]
  - Interstitial lung disease [Unknown]
  - Pharyngeal cancer [Unknown]
  - Pancreatic carcinoma [Unknown]
  - Oesophageal carcinoma [Unknown]
  - Acute coronary syndrome [Unknown]
  - Infusion related reaction [Unknown]
  - Basal cell carcinoma [Unknown]
  - Uterine cancer [Unknown]
  - Endometrial cancer [Unknown]
  - Soft tissue neoplasm [Unknown]
